FAERS Safety Report 10496141 (Version 1)
Quarter: 2014Q4

REPORT INFORMATION
  Report Type: Spontaneous
  Country: US (occurrence: US)
  Receive Date: 20141003
  Receipt Date: 20141003
  Transmission Date: 20150528
  Serious: Yes (Other)
  Sender: FDA-Public Use
  Company Number: US-PURDUE-USA-2014-0117577

PATIENT
  Sex: Male

DRUGS (2)
  1. OXYCONTIN [Suspect]
     Active Substance: OXYCODONE HYDROCHLORIDE
     Indication: PAIN
     Dosage: 60 MG, TID
     Dates: start: 1996, end: 20140904
  2. PERCOCET [Concomitant]
     Active Substance: ACETAMINOPHEN\OXYCODONE HYDROCHLORIDE
     Indication: PAIN

REACTIONS (6)
  - Photopsia [Unknown]
  - Aggression [Unknown]
  - Drug withdrawal syndrome [Unknown]
  - Nervousness [Unknown]
  - Self-injurious ideation [Unknown]
  - Insomnia [Unknown]

NARRATIVE: CASE EVENT DATE: 20140904
